FAERS Safety Report 12174082 (Version 3)
Quarter: 2016Q2

REPORT INFORMATION
  Report Type: Spontaneous
  Country: US (occurrence: US)
  Receive Date: 20160314
  Receipt Date: 20160422
  Transmission Date: 20160815
  Serious: Yes (Hospitalization, Disabling, Other)
  Sender: FDA-Public Use
  Company Number: US-HOSPIRA-3198640

PATIENT
  Age: 62 Year
  Sex: Female
  Weight: 60.32 kg

DRUGS (14)
  1. AMBAZONE [Suspect]
     Active Substance: AMBAZONE
     Indication: PNEUMONITIS
     Route: 042
     Dates: start: 20120820, end: 20120830
  2. LEVAQUIN [Suspect]
     Active Substance: LEVOFLOXACIN
     Indication: PROPHYLAXIS
     Route: 048
     Dates: start: 20120809, end: 20120830
  3. NORMAL SALINE [Concomitant]
     Active Substance: SODIUM CHLORIDE
     Indication: FLUID REPLACEMENT
     Dosage: 75 ML/HR ONCE
     Route: 042
     Dates: start: 20120809, end: 20120809
  4. DAUNORUBICIN [Suspect]
     Active Substance: DAUNORUBICIN
     Indication: ACUTE MYELOID LEUKAEMIA
     Dosage: 60 MG/ML, 1X/DAY, ON DAYS 1-3
     Route: 040
     Dates: start: 20120813, end: 20120815
  5. BENADRYL [Concomitant]
     Active Substance: DIPHENHYDRAMINE HYDROCHLORIDE
     Indication: PREMEDICATION
     Dosage: PRIOR TO TRANSFUSION
     Route: 048
     Dates: start: 20120809
  6. AMBISOME [Suspect]
     Active Substance: AMPHOTERICIN B
     Indication: PRODUCT USED FOR UNKNOWN INDICATION
  7. PROTONIX                           /00661201/ [Concomitant]
     Active Substance: OMEPRAZOLE
     Indication: PROPHYLAXIS
     Route: 048
     Dates: start: 20120809
  8. TYLENOL [Concomitant]
     Active Substance: ACETAMINOPHEN
     Indication: PREMEDICATION
     Dosage: PRIOR TO TRANSFUSION
     Route: 048
     Dates: start: 20120809
  9. ALLOPURINOL. [Concomitant]
     Active Substance: ALLOPURINOL
     Indication: PROPHYLAXIS
     Route: 048
     Dates: start: 20120809
  10. LIDOCAINE. [Concomitant]
     Active Substance: LIDOCAINE
     Indication: PREMEDICATION
     Dosage: 1%, SINGLE, ONCE
     Route: 030
     Dates: start: 20120809, end: 20120809
  11. SENNA                              /00142201/ [Concomitant]
     Active Substance: SENNA LEAF
     Indication: CONSTIPATION
     Dosage: 1 TAB BID
     Route: 048
     Dates: start: 20120810
  12. CYTARABINE. [Suspect]
     Active Substance: CYTARABINE
     Indication: ACUTE MYELOID LEUKAEMIA
     Dosage: 100 MG/ML, INDUCTION: CONTINUOUS INFUSION ON DAYS 1-7
     Route: 042
     Dates: start: 20120813, end: 20120819
  13. INVESTIGATIONAL DRUG [Suspect]
     Active Substance: INVESTIGATIONAL PRODUCT
     Indication: ACUTE MYELOID LEUKAEMIA
     Dosage: CONTINUOUS
     Route: 048
     Dates: start: 20120810, end: 20120829
  14. NORMAL SALINE [Concomitant]
     Active Substance: SODIUM CHLORIDE
     Indication: FLUID REPLACEMENT
     Dosage: 100 ML/HR CONTINUOUS
     Route: 042
     Dates: start: 20120809

REACTIONS (3)
  - Interstitial lung disease [Unknown]
  - Polyneuropathy [Recovered/Resolved with Sequelae]
  - Subarachnoid haemorrhage [Unknown]

NARRATIVE: CASE EVENT DATE: 20120827
